FAERS Safety Report 9978721 (Version 1)
Quarter: 2014Q1

REPORT INFORMATION
  Report Type: Report from Study
  Country: US (occurrence: US)
  Receive Date: 20140306
  Receipt Date: 20140306
  Transmission Date: 20141002
  Serious: No
  Sender: FDA-Public Use
  Company Number: US-ABBVIE-13P-163-1173529-00

PATIENT
  Age: 14 Year
  Sex: Female

DRUGS (6)
  1. HUMIRA [Suspect]
     Indication: PRODUCT USED FOR UNKNOWN INDICATION
     Dosage: 2 PENS
     Dates: start: 20131112, end: 20131112
  2. HUMIRA [Suspect]
     Dosage: 1 PEN
     Dates: start: 20131119, end: 20131119
  3. HUMIRA [Suspect]
  4. METHOTREXATE [Concomitant]
     Indication: PSORIASIS
     Dosage: WEEKLY
  5. FOLIC ACID [Concomitant]
     Indication: VITAMIN SUPPLEMENTATION
     Dosage: WEEKLY
  6. MULTIVITAMIN [Concomitant]
     Indication: VITAMIN SUPPLEMENTATION

REACTIONS (3)
  - Injection site urticaria [Recovering/Resolving]
  - Psoriasis [Recovering/Resolving]
  - Injection site pruritus [Recovering/Resolving]
